FAERS Safety Report 5510424-7 (Version None)
Quarter: 2007Q4

REPORT INFORMATION
  Report Type: 
  Country: None (occurrence: None)
  Receive Date: 20071108
  Receipt Date: 20071031
  Transmission Date: 20080405
  Serious: Yes (Other)
  Sender: FDA-Public Use
  Company Number: US-PFIZER INC-2007076087

PATIENT
  Sex: Male
  Weight: 90.909 kg

DRUGS (2)
  1. LIPITOR [Suspect]
     Indication: CORONARY ARTERY OCCLUSION
     Dates: start: 20061201, end: 20070908
  2. AVODART [Concomitant]

REACTIONS (4)
  - ANGIOPATHY [None]
  - INSOMNIA [None]
  - MUSCLE FATIGUE [None]
  - MYALGIA [None]
